FAERS Safety Report 8447879-4 (Version None)
Quarter: 2012Q2

REPORT INFORMATION
  Report Type: 
  Country: None (occurrence: None)
  Receive Date: 20120619
  Receipt Date: 20120605
  Transmission Date: 20120825
  Serious: Yes (Hospitalization)
  Sender: FDA-Public Use
  Company Number: FR-BAYER-2012-057848

PATIENT
  Age: 85 Year
  Sex: Female
  Weight: 154.3 kg

DRUGS (24)
  1. PIPOBROMAN [Suspect]
     Dosage: 400MG PER WEEK
     Route: 048
     Dates: start: 20070301, end: 20070710
  2. PIPOBROMAN [Suspect]
     Dosage: 700MG PER WEEK
     Route: 048
     Dates: start: 20071116, end: 20080526
  3. ANAGRELIDE HCL [Suspect]
     Indication: ESSENTIAL THROMBOCYTHAEMIA
     Dosage: 5MG ONCE A DAY
     Route: 048
     Dates: start: 20080211, end: 20080311
  4. ANAGRELIDE HCL [Suspect]
     Dosage: 2MG DAILY
     Route: 048
     Dates: start: 20080511, end: 20080611
  5. FLECAINIDE ACETATE [Concomitant]
     Indication: VENTRICULAR EXTRASYSTOLES
  6. PIPOBROMAN [Suspect]
     Dosage: 525MG PER WEEK
     Route: 048
     Dates: start: 20070910, end: 20071116
  7. PIPOBROMAN [Suspect]
     Dosage: 525 MG PER WEEK
     Dates: start: 20080526, end: 20080922
  8. ANAGRELIDE HCL [Suspect]
     Dosage: 1.5MG DAILY
     Route: 048
     Dates: start: 20080411, end: 20080511
  9. PIPOBROMAN [Suspect]
     Dosage: 25 OR 50MG DAILY
     Route: 048
     Dates: start: 19980803, end: 19990201
  10. PIPOBROMAN [Suspect]
     Dosage: 25MG EVERY TWO DAYS
     Route: 048
     Dates: start: 20090703
  11. FLUINDIONE [Suspect]
     Dosage: 5MG ONCE A DAY
     Dates: start: 20090616
  12. ANASTROZOLE [Concomitant]
     Indication: BREAST CANCER
     Dosage: 1MG ONCE A DAY
     Route: 048
     Dates: start: 20070828
  13. HYDROXYUREA [Suspect]
     Indication: ESSENTIAL THROMBOCYTHAEMIA
     Dosage: 1000 OR 1500MG DAILY
     Route: 048
     Dates: start: 19960620, end: 19980618
  14. FLUINDIONE [Suspect]
     Indication: ESSENTIAL THROMBOCYTHAEMIA
     Dosage: 10MG ONCE A DAY
     Route: 048
     Dates: start: 20090516, end: 20090602
  15. FLECAINIDE ACETATE [Concomitant]
     Indication: SUPRAVENTRICULAR EXTRASYSTOLES
     Dosage: 100MG
     Route: 048
     Dates: start: 20090516
  16. PIPOBROMAN [Suspect]
     Indication: ESSENTIAL THROMBOCYTHAEMIA
     Dosage: 325MG PER WEEK
     Route: 048
     Dates: start: 19990601, end: 20070301
  17. PIPOBROMAN [Suspect]
     Dosage: 475MG PER WEEK
     Route: 048
     Dates: start: 20070710, end: 20070910
  18. PIPOBROMAN [Suspect]
     Dosage: 175MG PER WEEK
     Route: 048
     Dates: start: 20080923, end: 20081222
  19. PIPOBROMAN [Suspect]
     Dosage: 37,5MG EVERY OTHER DAY
     Route: 048
     Dates: start: 20090516, end: 20090702
  20. ANAGRELIDE HCL [Suspect]
     Dosage: 1MG DAILY
     Route: 048
     Dates: start: 20080311, end: 20080411
  21. ANAGRELIDE HCL [Suspect]
     Dosage: 2.5MG DAILY
     Route: 048
     Dates: start: 20080611, end: 20081222
  22. ASPIRIN [Suspect]
     Indication: ESSENTIAL THROMBOCYTHAEMIA
     Dosage: 100 MG, QD
     Route: 048
     Dates: start: 19990627, end: 20090520
  23. ANAGRELIDE HCL [Suspect]
     Dosage: 2MG DAILY
     Route: 048
     Dates: start: 20081223, end: 20090516
  24. ARANESP [Concomitant]
     Indication: ANAEMIA
     Dosage: 150UG EVERY TEO WEEKS
     Route: 048
     Dates: start: 20081222

REACTIONS (3)
  - OVERDOSE [None]
  - DRUG ABUSE [None]
  - DRUG DEPENDENCE [None]
